FAERS Safety Report 7416485-2 (Version None)
Quarter: 2011Q2

REPORT INFORMATION
  Report Type: 
  Country: None (occurrence: None)
  Receive Date: 20110414
  Receipt Date: 20110413
  Transmission Date: 20111010
  Serious: Yes (Hospitalization)
  Sender: FDA-Public Use
  Company Number: US-PFIZER INC-2011063570

PATIENT
  Sex: Male

DRUGS (11)
  1. AMLODIPINE [Concomitant]
     Dosage: UNK
     Route: 048
     Dates: start: 20081120
  2. AZITHROMYCIN [Suspect]
     Dosage: UNK
     Route: 048
     Dates: start: 20110221, end: 20110226
  3. AUGMENTIN [Suspect]
     Dosage: UNK
     Route: 048
     Dates: start: 20110224, end: 20110303
  4. CP-690,550 [Suspect]
     Indication: RENAL TRANSPLANT
     Dosage: 5 MG, 2X/DAY
     Route: 048
     Dates: start: 20091118
  5. PREDNISONE [Concomitant]
     Dosage: 5 MG, UNK
     Route: 048
     Dates: start: 20090224, end: 20110309
  6. SENSIPAR [Concomitant]
     Dosage: UNK
     Route: 048
     Dates: start: 20081120, end: 20110310
  7. LIPITOR [Concomitant]
     Dosage: UNK
     Route: 048
     Dates: start: 20090522, end: 20110310
  8. METOPROLOL [Concomitant]
     Dosage: UNK
     Route: 048
     Dates: start: 20081116, end: 20110312
  9. MYCOPHENOLATE MOFETIL [Concomitant]
     Indication: RENAL TRANSPLANT
     Dosage: 720 MG, 2X/DAY
     Route: 048
     Dates: start: 20090224
  10. VITAMIN D [Concomitant]
     Dosage: UNK
     Route: 048
  11. MAGIC MOUTHWASH [Concomitant]
     Dosage: UNK
     Route: 048
     Dates: start: 20110224

REACTIONS (3)
  - HYPOKALAEMIA [None]
  - NAUSEA [None]
  - VOMITING [None]
